FAERS Safety Report 7486618-0 (Version None)
Quarter: 2011Q2

REPORT INFORMATION
  Report Type: 
  Country: None (occurrence: None)
  Receive Date: 20110517
  Receipt Date: 20110511
  Transmission Date: 20111010
  Serious: Yes (Other)
  Sender: FDA-Public Use
  Company Number: US-ABBOTT-11P-163-0725085-00

PATIENT
  Sex: Female
  Weight: 72.64 kg

DRUGS (8)
  1. CRESTOR [Concomitant]
     Indication: BLOOD CHOLESTEROL INCREASED
  2. METHOTREXATE [Concomitant]
     Indication: RHEUMATOID ARTHRITIS
  3. ATENOLOL [Concomitant]
     Indication: HYPERTENSION
  4. CYMBALTA [Concomitant]
     Indication: PAIN
  5. CYMBALTA [Concomitant]
     Indication: DEPRESSION
  6. NEXIUM [Concomitant]
     Indication: GASTROOESOPHAGEAL REFLUX DISEASE
  7. HUMIRA [Suspect]
     Indication: RHEUMATOID ARTHRITIS
     Route: 058
     Dates: start: 20100101
  8. LEUCOVORIN CALCIUM [Concomitant]
     Indication: VITAMIN SUPPLEMENTATION

REACTIONS (10)
  - ARTHRITIS [None]
  - PAIN IN EXTREMITY [None]
  - BRONCHITIS [None]
  - ARTHRALGIA [None]
  - HEADACHE [None]
  - INJECTION SITE PAIN [None]
  - DUPUYTREN'S CONTRACTURE [None]
  - JOINT SWELLING [None]
  - SKIN MASS [None]
  - OEDEMA PERIPHERAL [None]
